FAERS Safety Report 7004332-2 (Version None)
Quarter: 2010Q3

REPORT INFORMATION
  Report Type: 
  Country: None (occurrence: None)
  Receive Date: 20100921
  Receipt Date: 20100909
  Transmission Date: 20110219
  Serious: No
  Sender: FDA-Public Use
  Company Number: US-BIOGENIDEC-2010BI014711

PATIENT
  Age: 44 Year
  Sex: Female

DRUGS (1)
  1. TYSABRI [Suspect]
     Indication: MULTIPLE SCLEROSIS
     Route: 042
     Dates: start: 20100427

REACTIONS (8)
  - AGRAPHIA [None]
  - ARTHRALGIA [None]
  - FATIGUE [None]
  - HEADACHE [None]
  - MIGRAINE [None]
  - MUSCLE TIGHTNESS [None]
  - PAIN [None]
  - STRESS [None]
